FAERS Safety Report 16037438 (Version 1)
Quarter: 2019Q1

REPORT INFORMATION
  Report Type: Spontaneous
  Country: US (occurrence: US)
  Receive Date: 20190305
  Receipt Date: 20190305
  Transmission Date: 20190418
  Serious: No
  Sender: FDA-Public Use
  Company Number: US-IMPAX LABORATORIES, LLC-2018-IPXL-03658

PATIENT
  Age: 68 Year
  Sex: Male
  Weight: 77 kg

DRUGS (2)
  1. RYTARY [Suspect]
     Active Substance: CARBIDOPA\LEVODOPA
     Indication: PARKINSON^S DISEASE
     Dosage: 48.75/195 MG, TWO CAPSULES, FOUR TIMES A DAY
     Route: 048
     Dates: start: 20181003, end: 20181018
  2. RYTARY [Suspect]
     Active Substance: CARBIDOPA\LEVODOPA
     Dosage: UNK, 1 CAPSULE OF A HIGHER RYTARY DOSE WITH 1 CAPSULE OF A LOWER RYTARY DOSE 4 TIMES DAILY
     Route: 048
     Dates: start: 20181024, end: 20181028

REACTIONS (5)
  - Flatulence [Recovering/Resolving]
  - Hyperhidrosis [Recovering/Resolving]
  - Tremor [Not Recovered/Not Resolved]
  - Dyskinesia [Recovering/Resolving]
  - Therapeutic response shortened [Unknown]

NARRATIVE: CASE EVENT DATE: 201810
